FAERS Safety Report 19141327 (Version 3)
Quarter: 2021Q3

REPORT INFORMATION
  Report Type: Spontaneous
  Country: US (occurrence: US)
  Receive Date: 20210415
  Receipt Date: 20210809
  Transmission Date: 20211014
  Serious: No
  Sender: FDA-Public Use
  Company Number: US-SA-2021SA120329

PATIENT
  Age: 46 Year
  Sex: Female

DRUGS (2)
  1. DUPIXENT [Suspect]
     Active Substance: DUPILUMAB
     Dosage: 300 MG, OTHER
     Route: 058
     Dates: start: 2021
  2. DUPIXENT [Suspect]
     Active Substance: DUPILUMAB
     Indication: DERMATITIS ATOPIC
     Dosage: 600 MG, OTHER
     Route: 058
     Dates: start: 20210406, end: 20210406

REACTIONS (8)
  - Injection site discomfort [Unknown]
  - Fall [Unknown]
  - Scleral haemorrhage [Unknown]
  - Haematoma [Unknown]
  - Product preparation error [Unknown]
  - Rash [Unknown]
  - Concussion [Unknown]
  - Therapeutic response decreased [Unknown]

NARRATIVE: CASE EVENT DATE: 2021
